FAERS Safety Report 11223283 (Version 1)
Quarter: 2015Q2

REPORT INFORMATION
  Report Type: Other
  Country: US (occurrence: US)
  Receive Date: 20150626
  Receipt Date: 20150626
  Transmission Date: 20150821
  Serious: Yes (Hospitalization)
  Sender: FDA-Public Use
  Company Number: US-LEHIGH_VALLEY-USA-POI0580201500066

PATIENT
  Age: 14 Year
  Sex: Female

DRUGS (3)
  1. LIDOCAINE. [Concomitant]
     Active Substance: LIDOCAINE
  2. CAFFEINE. [Concomitant]
     Active Substance: CAFFEINE
  3. OXYCODONE HCL CAPSULES [Suspect]
     Active Substance: OXYCODONE HYDROCHLORIDE
     Dates: start: 201406, end: 201406

REACTIONS (4)
  - Leukoencephalopathy [Recovering/Resolving]
  - Brain injury [Recovering/Resolving]
  - Overdose [Recovering/Resolving]
  - Toxic encephalopathy [Recovering/Resolving]

NARRATIVE: CASE EVENT DATE: 201406
